FAERS Safety Report 20107524 (Version 1)
Quarter: 2021Q4

REPORT INFORMATION
  Report Type: Spontaneous
  Country: US (occurrence: None)
  Receive Date: 20211123
  Receipt Date: 20211123
  Transmission Date: 20220303
  Serious: No
  Sender: FDA-Public Use
  Company Number: None

PATIENT
  Age: 65 Year
  Sex: Female

DRUGS (15)
  1. MODAFINIL [Suspect]
     Active Substance: MODAFINIL
     Indication: Product used for unknown indication
     Dosage: OTHER QUANTITY : 90 TABLET(S);?
     Route: 048
  2. Aspercreme [Concomitant]
  3. torvastatin Calcium / [Concomitant]
  4. Vitamin D 600 mg- [Concomitant]
  5. CARVEDILOL [Concomitant]
  6. Cinnamon Clopidogrel Dandelion Ginger [Concomitant]
  7. HYDROCHLOROTHIAZIDE [Concomitant]
  8. LISINOPRIL [Concomitant]
     Active Substance: LISINOPRIL
  9. LANTUS [Concomitant]
     Active Substance: INSULIN GLARGINE
  10. LEVOTHYROXINE [Suspect]
     Active Substance: LEVOTHYROXINE
  11. METHOTREXATE [Concomitant]
     Active Substance: METHOTREXATE
  12. MUCINEX [Concomitant]
     Active Substance: GUAIFENESIN
  13. NOVOLOG [Concomitant]
     Active Substance: INSULIN ASPART
  14. RIZATRIPTAN [Concomitant]
     Active Substance: RIZATRIPTAN
  15. TYLENOL ARTHRITIS PAIN [Concomitant]
     Active Substance: ACETAMINOPHEN

REACTIONS (5)
  - Insomnia [None]
  - Drug hypersensitivity [None]
  - Pruritus [None]
  - Erythema [None]
  - Skin disorder [None]
